FAERS Safety Report 20620651 (Version 6)
Quarter: 2023Q1

REPORT INFORMATION
  Report Type: Report from Study
  Country: US (occurrence: None)
  Receive Date: 20220322
  Receipt Date: 20230117
  Transmission Date: 20230417
  Serious: Yes (Other)
  Sender: FDA-Public Use
  Company Number: US-ROCHE-2878507

PATIENT
  Age: 71 Year
  Sex: Female
  Weight: 95.3 kg

DRUGS (33)
  1. RANIBIZUMAB [Suspect]
     Active Substance: RANIBIZUMAB
     Indication: Neovascular age-related macular degeneration
     Dosage: DRUG DOSE FIRST ADMINISTERED IS 100 MG/ML, FREQUENCY OF REFILL OF THE IMPLANT: ONCE IN 24 WEEKS?DOSE
     Route: 050
     Dates: start: 20210205
  2. RANIBIZUMAB [Suspect]
     Active Substance: RANIBIZUMAB
  3. RANIBIZUMAB [Suspect]
     Active Substance: RANIBIZUMAB
  4. RANIBIZUMAB [Suspect]
     Active Substance: RANIBIZUMAB
  5. RANIBIZUMAB [Suspect]
     Active Substance: RANIBIZUMAB
  6. RANIBIZUMAB [Suspect]
     Active Substance: RANIBIZUMAB
  7. RANIBIZUMAB [Suspect]
     Active Substance: RANIBIZUMAB
  8. RANIBIZUMAB [Concomitant]
     Active Substance: RANIBIZUMAB
     Indication: Neovascular age-related macular degeneration
     Dosage: DOSE LAST STUDY DRUG ADMIN PRIOR AE/SAE IS 10 MG/ML
     Route: 050
  9. RANIBIZUMAB [Concomitant]
     Active Substance: RANIBIZUMAB
     Route: 050
     Dates: start: 20220926, end: 20220926
  10. RANIBIZUMAB [Concomitant]
     Active Substance: RANIBIZUMAB
     Dosage: DOSE OF STUDY DRUG FIRST ADMINISTERED 10 MG/ML?DOSE LAST STUDY DRUG ADMIN PRIOR AE/SAE 10 MG/ML
     Route: 050
     Dates: start: 20220926
  11. CELEXA [Concomitant]
     Active Substance: CITALOPRAM HYDROBROMIDE
     Indication: Depression
     Route: 048
     Dates: start: 1980
  12. FLONASE [Concomitant]
     Active Substance: FLUTICASONE PROPIONATE
     Indication: Seasonal allergy
     Route: 045
     Dates: start: 2010
  13. ASTELIN [Concomitant]
     Active Substance: AZELASTINE HYDROCHLORIDE
     Indication: Seasonal allergy
     Route: 055
     Dates: start: 2015
  14. HYDROCHLOROTHIAZIDE [Concomitant]
     Active Substance: HYDROCHLOROTHIAZIDE
     Indication: Hypertension
     Route: 048
     Dates: start: 201906
  15. MOBIC [Concomitant]
     Active Substance: MELOXICAM
     Indication: Spinal osteoarthritis
     Route: 048
     Dates: start: 20190408
  16. CLOBETASOL [Concomitant]
     Active Substance: CLOBETASOL
     Indication: Pruritus
     Dates: start: 20171022
  17. MELOXICAM [Concomitant]
     Active Substance: MELOXICAM
     Indication: Spinal osteoarthritis
     Dates: start: 2019
  18. SULFACETAMIDE SODIUM\SULFUR [Concomitant]
     Active Substance: SULFACETAMIDE SODIUM\SULFUR
     Indication: Rosacea
     Dates: start: 20200507
  19. LOSARTAN [Concomitant]
     Active Substance: LOSARTAN
     Indication: Cardiovascular event prophylaxis
     Dates: start: 20191029
  20. TOBRAMYCIN [Concomitant]
     Active Substance: TOBRAMYCIN
     Dosage: S/P IMPLANT REFILL
     Dates: start: 20210716, end: 20210718
  21. TOBRAMYCIN [Concomitant]
     Active Substance: TOBRAMYCIN
     Dosage: PRE-SURGERY ANTIMICROBIAL
     Dates: start: 20210831, end: 20210927
  22. TOBRAMYCIN [Concomitant]
     Active Substance: TOBRAMYCIN
     Dates: start: 20210205, end: 20210205
  23. TOBRAMYCIN [Concomitant]
     Active Substance: TOBRAMYCIN
     Dates: start: 20220701
  24. CORTISONE [Concomitant]
     Active Substance: CORTISONE
     Indication: Arthritis
     Dates: start: 20210413, end: 20210413
  25. CORTISONE [Concomitant]
     Active Substance: CORTISONE
     Dates: start: 20210504, end: 20210504
  26. PREDNISOLONE [Concomitant]
     Active Substance: PREDNISOLONE
     Dates: start: 20210902, end: 20220211
  27. HYALURONIC ACID [Concomitant]
     Active Substance: HYALURONIC ACID
     Indication: Arthritis
     Dates: start: 20220328, end: 20220328
  28. HYALURONIC ACID [Concomitant]
     Active Substance: HYALURONIC ACID
     Dates: start: 20220405, end: 20220405
  29. HYALURONIC ACID [Concomitant]
     Active Substance: HYALURONIC ACID
     Dates: start: 20220412, end: 20220412
  30. ASPIRIN [Concomitant]
     Active Substance: ASPIRIN
     Dates: start: 20220725, end: 20220726
  31. LOVENOX [Concomitant]
     Active Substance: ENOXAPARIN SODIUM
     Dates: start: 20220725
  32. AMOXICILLIN [Concomitant]
     Active Substance: AMOXICILLIN
     Indication: Sinusitis
     Dates: start: 20220919, end: 20220924
  33. SUDAFED [Concomitant]
     Active Substance: PSEUDOEPHEDRINE HYDROCHLORIDE
     Indication: Sinusitis
     Dates: start: 20220919, end: 20220924

REACTIONS (1)
  - Conjunctival bleb [Recovered/Resolved]

NARRATIVE: CASE EVENT DATE: 20210716
